FAERS Safety Report 9846653 (Version 1)
Quarter: 2014Q1

REPORT INFORMATION
  Report Type: Spontaneous
  Country: FI (occurrence: FI)
  Receive Date: 20140127
  Receipt Date: 20140127
  Transmission Date: 20141002
  Serious: Yes (Death)
  Sender: FDA-Public Use
  Company Number: FI-GLAXOSMITHKLINE-B0963572A

PATIENT
  Age: 60 Year
  Sex: Female

DRUGS (2)
  1. VOTRIENT [Suspect]
     Indication: ANGIOMYOLIPOMA
     Dosage: 600MG PER DAY
     Route: 048
     Dates: start: 20130617
  2. KLEXANE [Concomitant]
     Indication: THROMBOSIS PROPHYLAXIS
     Dosage: 40MG PER DAY
     Route: 058
     Dates: start: 20130111

REACTIONS (1)
  - Cerebral haemorrhage [Fatal]
